FAERS Safety Report 10595280 (Version 2)
Quarter: 2015Q2

REPORT INFORMATION
  Report Type: Spontaneous
  Country: US (occurrence: None)
  Receive Date: 20141118
  Receipt Date: 20150417
  Transmission Date: 20150821
  Serious: Yes (Hospitalization)
  Sender: FDA-Public Use
  Company Number: 1713747-2014-999196

PATIENT
  Age: 76 Year
  Sex: Male
  Weight: 101 kg

DRUGS (5)
  1. NATURALYTE [Concomitant]
     Active Substance: ACETIC ACID\SODIUM ACETATE
  2. 2008T HEMODIALYSIS DEVICE [Concomitant]
  3. 0.9% SODIUM CHLORIDE INJECTION, USP IN MINI-BAG PLUS CONTAINER [Suspect]
     Active Substance: SODIUM CHLORIDE
     Indication: CHRONIC KIDNEY DISEASE
     Dosage: HEMODIALYSIS
     Dates: start: 20141023
  4. LIQUID BICARBONATE [Concomitant]
  5. OPTIFLUX DIALYZER [Concomitant]
     Active Substance: DEVICE

REACTIONS (4)
  - Unresponsive to stimuli [None]
  - Pulse absent [None]
  - Dizziness [None]
  - Cardio-respiratory arrest [None]

NARRATIVE: CASE EVENT DATE: 20141023
